FAERS Safety Report 7410346-0 (Version None)
Quarter: 2011Q2

REPORT INFORMATION
  Report Type: 
  Country: None (occurrence: None)
  Receive Date: 20110412
  Receipt Date: 20110330
  Transmission Date: 20111010
  Serious: Yes (Hospitalization)
  Sender: FDA-Public Use
  Company Number: US-WATSON-2011-05042

PATIENT
  Age: 70 Year

DRUGS (1)
  1. FLUOROURACIL [Suspect]
     Indication: RECTAL CANCER
     Dosage: 2.4 G/MM

REACTIONS (1)
  - HYPERAMMONAEMIC ENCEPHALOPATHY [None]
